FAERS Safety Report 7306769-0 (Version None)
Quarter: 2011Q1

REPORT INFORMATION
  Report Type: 
  Country: None (occurrence: None)
  Receive Date: 20110222
  Receipt Date: 20110208
  Transmission Date: 20110831
  Serious: Yes (Hospitalization, Other)
  Sender: FDA-Public Use
  Company Number: FR-WATSON-2011-01158

PATIENT
  Sex: Female

DRUGS (4)
  1. ALBUTEROL SULFATE AUTOHALER [Suspect]
     Indication: BRONCHIOLITIS
     Dosage: UNK
     Route: 055
     Dates: start: 20110112, end: 20110117
  2. SOLU-MEDROL [Concomitant]
     Indication: PRODUCT USED FOR UNKNOWN INDICATION
     Dosage: 5 MG, UNK
     Route: 042
     Dates: start: 20110111, end: 20110116
  3. CELESTENE                          /00008501/ [Concomitant]
     Indication: BRONCHIOLITIS
     Dosage: 60 GTT, UNK
     Route: 048
     Dates: start: 20110116, end: 20110117
  4. AUGMENTIN '125' [Suspect]
     Indication: PRODUCT USED FOR UNKNOWN INDICATION
     Dosage: UNK
     Dates: start: 20110113, end: 20110118

REACTIONS (2)
  - OXYGEN SATURATION ABNORMAL [None]
  - RESPIRATORY DISORDER [None]
